FAERS Safety Report 9761368 (Version 2)
Quarter: 2013Q3

REPORT INFORMATION
  Report Type: Spontaneous
  Country: US (occurrence: None)
  Receive Date: 20130611
  Receipt Date: 20130709
  Transmission Date: 20140515
  Serious: No
  Sender: FDA-Public Use
  Company Number: 2013P1006921

PATIENT
  Age: 72 Year
  Sex: Male

DRUGS (1)
  1. INFUMORPH [Suspect]
     Indication: PAIN
     Dosage: 7 MG ; QD ; INTH UNKNOWN-UNKNOWN THERAPY DATES
     Route: 037

REACTIONS (7)
  - Drug ineffective [None]
  - Underdose [None]
  - Device kink [None]
  - Withdrawal syndrome [None]
  - Device malfunction [None]
  - Pain [None]
  - Device kink [None]
